FAERS Safety Report 7919381-7 (Version None)
Quarter: 2011Q4

REPORT INFORMATION
  Report Type: 
  Country: None (occurrence: None)
  Receive Date: 20111115
  Receipt Date: 20111115
  Transmission Date: 20120403
  Serious: Yes (Hospitalization)
  Sender: FDA-Public Use
  Company Number: None

PATIENT
  Sex: Female
  Weight: 42.9 kg

DRUGS (6)
  1. CYTARABINE [Suspect]
     Dosage: 190 MG
  2. ONCASPAR [Suspect]
     Dosage: 13400 MG
  3. DOXORUBICIN HCL [Suspect]
     Dosage: 80 MG
  4. PREDNISONE TAB [Suspect]
     Dosage: 1515 MG
  5. METHOTREXATE [Suspect]
     Dosage: 60 MG
  6. VINCRISTINE SULFATE [Suspect]
     Dosage: 8 MG

REACTIONS (10)
  - DEEP VEIN THROMBOSIS [None]
  - ACIDOSIS [None]
  - SEPSIS [None]
  - HYPOTENSION [None]
  - COAGULOPATHY [None]
  - CONSTIPATION [None]
  - RESPIRATORY FAILURE [None]
  - ZYGOMYCOSIS [None]
  - PNEUMONIA [None]
  - DISSEMINATED INTRAVASCULAR COAGULATION [None]
